FAERS Safety Report 4458122-5 (Version None)
Quarter: 2004Q3

REPORT INFORMATION
  Report Type: 
  Country: None (occurrence: None)
  Receive Date: 20040924
  Receipt Date: 20040920
  Transmission Date: 20050211
  Serious: Yes (Other)
  Sender: FDA-Public Use
  Company Number: US-GLAXOSMITHKLINE-A0526801A

PATIENT
  Sex: Female

DRUGS (1)
  1. WELLBUTRIN XL [Suspect]
     Indication: DRUG USE FOR UNKNOWN INDICATION
     Route: 048
     Dates: start: 20040101

REACTIONS (17)
  - ANOREXIA [None]
  - ASTHENIA [None]
  - CHOKING [None]
  - DISTRACTIBILITY [None]
  - EARLY MORNING AWAKENING [None]
  - INSOMNIA [None]
  - LETHARGY [None]
  - MEMORY IMPAIRMENT [None]
  - MUSCLE TIGHTNESS [None]
  - NAUSEA [None]
  - SLEEP DISORDER [None]
  - SPEECH DISORDER [None]
  - TINNITUS [None]
  - TONGUE PARALYSIS [None]
  - TREMOR [None]
  - VISION BLURRED [None]
  - WEIGHT DECREASED [None]
